FAERS Safety Report 8453047-2 (Version None)
Quarter: 2012Q2

REPORT INFORMATION
  Report Type: 
  Country: None (occurrence: None)
  Receive Date: 20120620
  Receipt Date: 20120506
  Transmission Date: 20120825
  Serious: No
  Sender: FDA-Public Use
  Company Number: US-VERTEX PHARMACEUTICALS INC.-AE-2012-006537

PATIENT
  Sex: Female
  Weight: 62.652 kg

DRUGS (4)
  1. IBUPROFEN (ADVIL) [Concomitant]
     Indication: PAIN
     Route: 048
  2. INCIVEK [Suspect]
     Indication: HEPATITIS C
     Route: 048
     Dates: start: 20120316
  3. RIBAVIRIN [Concomitant]
     Indication: HEPATITIS C
     Route: 048
     Dates: start: 20120316
  4. PEGASYS [Concomitant]
     Indication: HEPATITIS C
     Route: 058
     Dates: start: 20120316

REACTIONS (4)
  - FEELING ABNORMAL [None]
  - RASH [None]
  - SWELLING FACE [None]
  - DYSPNOEA [None]
